FAERS Safety Report 5284435-3 (Version None)
Quarter: 2007Q1

REPORT INFORMATION
  Report Type: 
  Country: None (occurrence: None)
  Receive Date: 20070328
  Receipt Date: 20070312
  Transmission Date: 20070707
  Serious: Yes (Hospitalization, Other)
  Sender: FDA-Public Use
  Company Number: 15297

PATIENT
  Age: 43 Year
  Sex: Male

DRUGS (12)
  1. CYTOSINE ARABINOSINE [Suspect]
     Indication: BURKITT'S LYMPHOMA
     Dates: start: 19980401, end: 19980901
  2. DOXORUBICIN HCL [Suspect]
     Indication: BURKITT'S LYMPHOMA
     Dosage: 6 DF PER_CYCLE IV
     Route: 042
     Dates: start: 19980401, end: 19980901
  3. CO-TRIMOXAZOLE [Concomitant]
  4. CYTARABINE [Concomitant]
  5. TRIMETHOPRIM [Concomitant]
  6. METHOTREXATE [Suspect]
     Indication: BURKITT'S LYMPHOMA
     Dates: start: 19980401, end: 19980901
  7. VINCRISTINE [Suspect]
     Indication: BURKITT'S LYMPHOMA
     Dosage: 6 DF PER_CYCLE IV
     Route: 042
     Dates: start: 19980401, end: 19980901
  8. HYDROCORTISONE [Suspect]
     Indication: BURKITT'S LYMPHOMA
     Dates: start: 19980401, end: 19980901
  9. CYCLOPHOSPHAMIDE [Suspect]
     Indication: BURKITT'S LYMPHOMA
     Dosage: 6 DF PER_CYCLE IV
     Route: 042
     Dates: start: 19980401, end: 19980901
  10. PREDNISOLONE [Suspect]
     Indication: BURKITT'S LYMPHOMA
     Dates: start: 19980401, end: 19980901
  11. RITONAVIR [Suspect]
     Indication: ACQUIRED IMMUNODEFICIENCY SYNDROME
     Dosage: 800 MG DAILY PO
     Route: 048
     Dates: start: 19980101
  12. SAQUINAVIR [Suspect]
     Indication: ACQUIRED IMMUNODEFICIENCY SYNDROME
     Dosage: 800 MG DAIILY PO
     Route: 048
     Dates: start: 19980101

REACTIONS (9)
  - BLOOD CHOLESTEROL INCREASED [None]
  - BLOOD TRIGLYCERIDES INCREASED [None]
  - LUMBAR VERTEBRAL FRACTURE [None]
  - OSTEONECROSIS [None]
  - OSTEOPOROSIS [None]
  - PAIN IN EXTREMITY [None]
  - REFUSAL OF TREATMENT BY PATIENT [None]
  - SPINAL COMPRESSION FRACTURE [None]
  - THORACIC VERTEBRAL FRACTURE [None]
